FAERS Safety Report 7760298-9 (Version None)
Quarter: 2011Q3

REPORT INFORMATION
  Report Type: 
  Country: None (occurrence: None)
  Receive Date: 20110919
  Receipt Date: 20110912
  Transmission Date: 20111222
  Serious: Yes (Other)
  Sender: FDA-Public Use
  Company Number: US-PFIZER INC-2011176802

PATIENT
  Sex: Female

DRUGS (5)
  1. MULTI-VITAMINS [Concomitant]
     Dosage: UNK
  2. PREMPRO [Suspect]
     Indication: MENOPAUSAL SYMPTOMS
     Dosage: 0.3/1.5 MG, 1X/DAY
     Route: 048
     Dates: start: 20110622, end: 20110731
  3. FISH OIL [Concomitant]
     Dosage: UNK
  4. FLAXSEED OIL [Concomitant]
     Dosage: UNK
  5. PREMARIN [Concomitant]
     Dosage: 0.5 G, 2X/WEEK
     Route: 067
     Dates: start: 20110623

REACTIONS (4)
  - PURPURA [None]
  - PERIVASCULAR DERMATITIS [None]
  - BLOOD PRESSURE INCREASED [None]
  - ECCHYMOSIS [None]
